FAERS Safety Report 18993106 (Version 1)
Quarter: 2021Q1

REPORT INFORMATION
  Report Type: Report from Study
  Country: IT (occurrence: IT)
  Receive Date: 20210310
  Receipt Date: 20210310
  Transmission Date: 20210420
  Serious: Yes (Other)
  Sender: FDA-Public Use
  Company Number: IT-GLAXOSMITHKLINE-IT2021056828

PATIENT
  Age: 75 Year
  Sex: Female

DRUGS (2)
  1. LAMIVUDINE. [Suspect]
     Active Substance: LAMIVUDINE
     Indication: LYMPHOMA
     Dosage: 1 DF, QD
     Route: 048
  2. METHOTREXATE. [Suspect]
     Active Substance: METHOTREXATE
     Indication: LYMPHOMA
     Dosage: 15 MG, CYC
     Route: 041
     Dates: start: 20201223

REACTIONS (2)
  - Neutropenia [Recovering/Resolving]
  - Normocytic anaemia [Recovering/Resolving]

NARRATIVE: CASE EVENT DATE: 20210107
